FAERS Safety Report 6679552-7 (Version None)
Quarter: 2010Q2

REPORT INFORMATION
  Report Type: 
  Country: None (occurrence: None)
  Receive Date: 20100413
  Receipt Date: 20100405
  Transmission Date: 20101027
  Serious: Yes (Other)
  Sender: FDA-Public Use
  Company Number: PHHY2010BR21593

PATIENT
  Age: 72 Year
  Sex: Female

DRUGS (4)
  1. DIOVAN [Suspect]
     Indication: HYPERTENSION
     Dosage: 80 MG PER DAY
     Route: 048
     Dates: start: 20070101, end: 20090501
  2. DIOVAN [Suspect]
     Dosage: 80 MG, UNK
     Route: 048
     Dates: start: 20100404
  3. LORAX [Concomitant]
     Indication: SLEEP DISORDER
     Dosage: 1 TABLET PER DAY
     Route: 048
  4. CIPROFIBRATE [Concomitant]
     Indication: BLOOD CHOLESTEROL INCREASED
     Dosage: 1 TABLET A DAY
     Route: 048

REACTIONS (4)
  - BLOOD PRESSURE FLUCTUATION [None]
  - BLOOD PRESSURE INADEQUATELY CONTROLLED [None]
  - DRUG DOSE OMISSION [None]
  - HEART RATE DECREASED [None]
